FAERS Safety Report 6959662-7 (Version None)
Quarter: 2010Q3

REPORT INFORMATION
  Report Type: 
  Country: None (occurrence: None)
  Receive Date: 20100827
  Receipt Date: 20100813
  Transmission Date: 20110219
  Serious: Yes (Hospitalization)
  Sender: FDA-Public Use
  Company Number: DSM-2010-01150

PATIENT
  Age: 51 Year
  Sex: Male
  Weight: 84 kg

DRUGS (5)
  1. TRIBENZOR [Suspect]
     Indication: HYPERTENSION
     Dosage: 20/5/12.5 MG (1 IN 1 D), ORAL
     Route: 048
     Dates: start: 20100217, end: 20100712
  2. AMLODIPINE [Concomitant]
  3. SIMVASTATIN [Concomitant]
  4. ACETYLSALICYLIC ACID SRT [Concomitant]
  5. LANSOPRAZOLE [Concomitant]

REACTIONS (2)
  - EYE HAEMORRHAGE [None]
  - RETINAL DETACHMENT [None]
